FAERS Safety Report 7358358-X (Version None)
Quarter: 2011Q1

REPORT INFORMATION
  Report Type: 
  Country: None (occurrence: None)
  Receive Date: 20110314
  Receipt Date: 20110314
  Transmission Date: 20110831
  Serious: Yes (Hospitalization, Disabling)
  Sender: FDA-Public Use
  Company Number: None

PATIENT
  Age: 61 Year
  Sex: Female
  Weight: 51.7101 kg

DRUGS (1)
  1. FOSAMAX [Suspect]
     Indication: OSTEOPENIA
     Dosage: 1 PILL WEEKLY PO
     Route: 048
     Dates: start: 20050821, end: 20110307

REACTIONS (3)
  - FALL [None]
  - FEMUR FRACTURE [None]
  - MONOPLEGIA [None]
